FAERS Safety Report 9707908 (Version 2)
Quarter: 2013Q4

REPORT INFORMATION
  Report Type: Report from Study
  Country: JP (occurrence: JP)
  Receive Date: 20131125
  Receipt Date: 20131209
  Transmission Date: 20140711
  Serious: Yes (Hospitalization)
  Sender: FDA-Public Use
  Company Number: JP-CELGENEUS-087-21660-13114357

PATIENT
  Age: 60 Year
  Sex: Male
  Weight: 56 kg

DRUGS (5)
  1. ABRAXANE [Suspect]
     Indication: GASTRIC CANCER
     Dosage: 162 MILLIGRAM
     Route: 041
     Dates: start: 20130522
  2. ABRAXANE [Suspect]
     Dosage: 130 MILLIGRAM
     Route: 050
     Dates: start: 20131016, end: 20131023
  3. LYRICA [Concomitant]
     Indication: PERIPHERAL SENSORY NEUROPATHY
     Dosage: 200 MILLIGRAM
     Route: 048
     Dates: start: 20131009
  4. LANSOPRAZOLE [Concomitant]
     Indication: PROPHYLAXIS AGAINST GASTROINTESTINAL ULCER
     Dosage: 30 MILLIGRAM
     Route: 048
  5. REBAMIPIDE [Concomitant]
     Indication: PROPHYLAXIS AGAINST GASTROINTESTINAL ULCER
     Dosage: 300 MILLIGRAM
     Route: 048

REACTIONS (1)
  - Jaundice cholestatic [Not Recovered/Not Resolved]
